FAERS Safety Report 15192662 (Version 2)
Quarter: 2018Q3

REPORT INFORMATION
  Report Type: Spontaneous
  Country: US (occurrence: US)
  Receive Date: 20180725
  Receipt Date: 20180823
  Transmission Date: 20181010
  Serious: No
  Sender: FDA-Public Use
  Company Number: US-TEVA-2018-US-931852

PATIENT
  Age: 72 Year
  Sex: Female

DRUGS (2)
  1. VALSARTAN. [Suspect]
     Active Substance: VALSARTAN
     Indication: HYPERTENSION
     Route: 065
     Dates: start: 20180320, end: 20180710
  2. IRBESARTAN. [Concomitant]
     Active Substance: IRBESARTAN
     Dosage: 75 TAKEN HALF.
     Route: 065

REACTIONS (7)
  - Gait disturbance [Not Recovered/Not Resolved]
  - Wrong technique in product usage process [Unknown]
  - Abdominal discomfort [Unknown]
  - Dyspepsia [Unknown]
  - Lethargy [Not Recovered/Not Resolved]
  - Palpitations [Not Recovered/Not Resolved]
  - Memory impairment [Not Recovered/Not Resolved]
